FAERS Safety Report 6211674-7 (Version None)
Quarter: 2009Q2

REPORT INFORMATION
  Report Type: 
  Country: None (occurrence: None)
  Receive Date: 20090602
  Receipt Date: 20090525
  Transmission Date: 20091009
  Serious: Yes (Death)
  Sender: FDA-Public Use
  Company Number: B0544047A

PATIENT
  Sex: Male

DRUGS (5)
  1. KIVEXA [Suspect]
     Indication: HIV INFECTION
     Route: 048
     Dates: start: 20050919
  2. EPIVIR [Suspect]
     Indication: HIV INFECTION
     Route: 065
     Dates: start: 19990106, end: 20031020
  3. COMBIVIR [Suspect]
     Indication: HIV INFECTION
     Route: 048
     Dates: start: 20031020, end: 20050919
  4. VIRACEPT [Suspect]
     Indication: HIV INFECTION
     Route: 048
     Dates: start: 19981006
  5. ZERIT [Suspect]
     Indication: HIV INFECTION
     Route: 065
     Dates: start: 19971118, end: 20031020

REACTIONS (3)
  - DEATH [None]
  - HAEMATOTOXICITY [None]
  - LIPODYSTROPHY ACQUIRED [None]
